FAERS Safety Report 9098817 (Version 1)
Quarter: 2013Q1

REPORT INFORMATION
  Report Type: Spontaneous
  Country: US (occurrence: US)
  Receive Date: 20130213
  Receipt Date: 20130213
  Transmission Date: 20140127
  Serious: Yes (Hospitalization)
  Sender: FDA-Public Use
  Company Number: US-JNJFOC-20130201819

PATIENT
  Age: 90 Year
  Sex: Male

DRUGS (2)
  1. DITROPAN [Suspect]
     Indication: MICTURITION URGENCY
     Route: 048
  2. DITROPAN [Suspect]
     Indication: MICTURITION URGENCY
     Route: 048

REACTIONS (2)
  - Overdose [Unknown]
  - Pneumonia [Not Recovered/Not Resolved]
